FAERS Safety Report 8560525-4 (Version None)
Quarter: 2012Q3

REPORT INFORMATION
  Report Type: 
  Country: None (occurrence: None)
  Receive Date: 20120802
  Receipt Date: 20120726
  Transmission Date: 20120928
  Serious: Yes (Hospitalization)
  Sender: FDA-Public Use
  Company Number: US-009507513-2012SP011830

PATIENT

DRUGS (3)
  1. COUMADIN [Suspect]
     Indication: THROMBOSIS
  2. NEXIUM [Concomitant]
     Indication: GASTROOESOPHAGEAL REFLUX DISEASE
  3. NUVARING [Suspect]
     Indication: CONTRACEPTION
     Dosage: UNK
     Route: 067
     Dates: start: 20090129

REACTIONS (7)
  - CHOLELITHIASIS [None]
  - DEEP VEIN THROMBOSIS [None]
  - CEREBRAL THROMBOSIS [None]
  - VENA CAVA THROMBOSIS [None]
  - DIVERTICULUM [None]
  - DRUG HYPERSENSITIVITY [None]
  - RENAL DISORDER [None]
